FAERS Safety Report 8341574-8 (Version None)
Quarter: 2012Q2

REPORT INFORMATION
  Report Type: 
  Country: None (occurrence: None)
  Receive Date: 20120507
  Receipt Date: 20120503
  Transmission Date: 20120825
  Serious: No
  Sender: FDA-Public Use
  Company Number: US-PFIZER INC-2012109466

PATIENT
  Sex: Female
  Weight: 142.86 kg

DRUGS (3)
  1. LISINOPRIL AND HYDROCHLOROTHIAZIDE [Concomitant]
     Dosage: 10/12.5 MG, UNK
  2. SYNTHROID [Concomitant]
     Dosage: 50 UG, 1X/DAY
  3. CELEBREX [Suspect]
     Indication: PAIN
     Dosage: 200 MG, 1X/DAY
     Route: 048
     Dates: start: 20110901

REACTIONS (2)
  - DRUG INEFFECTIVE [None]
  - PAIN [None]
